FAERS Safety Report 26055768 (Version 1)
Quarter: 2025Q4

REPORT INFORMATION
  Report Type: Spontaneous
  Country: US (occurrence: US)
  Receive Date: 20251117
  Receipt Date: 20251117
  Transmission Date: 20260118
  Serious: No
  Sender: NOVITIUM PHARMA
  Company Number: US-NOVITIUM PHARMA-000262

PATIENT
  Age: 76 Year
  Sex: Female

DRUGS (4)
  1. FLUOXETINE [Suspect]
     Active Substance: FLUOXETINE HYDROCHLORIDE
     Indication: Antidepressant therapy
     Dosage: STRENGTH 20 MG/5 ML
     Route: 048
     Dates: start: 20251021
  2. NIFEDIPINE [Concomitant]
     Active Substance: NIFEDIPINE
     Indication: Product used for unknown indication
  3. ATORVASTATIN [Concomitant]
     Active Substance: ATORVASTATIN
     Indication: Product used for unknown indication
  4. FLUOXETINE [Suspect]
     Active Substance: FLUOXETINE HYDROCHLORIDE
     Indication: Antidepressant therapy
     Route: 048
     Dates: start: 20251021

REACTIONS (2)
  - Lacrimal disorder [Unknown]
  - Eye discharge [Unknown]

NARRATIVE: CASE EVENT DATE: 20251021
